FAERS Safety Report 11078981 (Version 2)
Quarter: 2015Q3

REPORT INFORMATION
  Report Type: Spontaneous
  Country: US (occurrence: US)
  Receive Date: 20150430
  Receipt Date: 20150709
  Transmission Date: 20151125
  Serious: Yes (Hospitalization)
  Sender: FDA-Public Use
  Company Number: US-JNJFOC-20150421033

PATIENT
  Age: 44 Year
  Sex: Female

DRUGS (10)
  1. INVOKANA [Suspect]
     Active Substance: CANAGLIFLOZIN
     Indication: TYPE 2 DIABETES MELLITUS
     Route: 048
     Dates: start: 201406, end: 201503
  2. CIPROFLOXACIN. [Concomitant]
     Active Substance: CIPROFLOXACIN
     Dosage: I TABLET EVERY 12 HOURS
     Route: 048
     Dates: start: 20150423
  3. LISINOPRIL. [Concomitant]
     Active Substance: LISINOPRIL
     Dosage: FOR 90 DAYS
     Route: 048
     Dates: start: 20140312
  4. GABAPENTIN. [Concomitant]
     Active Substance: GABAPENTIN
     Dosage: AT BEDTIME
     Route: 048
     Dates: start: 20140312
  5. LEVOTHYROXINE. [Concomitant]
     Active Substance: LEVOTHYROXINE
     Route: 048
     Dates: start: 20140312
  6. MELOXICAM. [Concomitant]
     Active Substance: MELOXICAM
     Dosage: WITH MEAL FOR 90 DAYS
     Route: 048
     Dates: start: 20140312
  7. JANUMET [Concomitant]
     Active Substance: METFORMIN HYDROCHLORIDE\SITAGLIPTIN PHOSPHATE
     Dosage: 50 MG-1000 MG TABLET, ONE TABLET TWICE DAILY
     Route: 048
     Dates: start: 20140312
  8. LANTUS SOLOSTAR [Concomitant]
     Active Substance: INSULIN GLARGINE
     Dosage: AT BEDTIME DAILY; 100 UNITS/ML (3ML)
     Route: 058
     Dates: start: 20140312
  9. PIOGLITAZONE. [Concomitant]
     Active Substance: PIOGLITAZONE
     Dosage: FOR 90 DAYS
     Route: 048
     Dates: start: 20140312
  10. PRAVASTATIN [Concomitant]
     Active Substance: PRAVASTATIN\PRAVASTATIN SODIUM
     Dosage: ONE TAB EVERYDAY
     Route: 048
     Dates: start: 20140312

REACTIONS (2)
  - Nephrolithiasis [Recovered/Resolved]
  - Pyelonephritis [Recovered/Resolved]

NARRATIVE: CASE EVENT DATE: 201503
